FAERS Safety Report 25670474 (Version 2)
Quarter: 2025Q3

REPORT INFORMATION
  Report Type: Spontaneous
  Country: CN (occurrence: CN)
  Receive Date: 20250812
  Receipt Date: 20250820
  Transmission Date: 20251021
  Serious: No
  Sender: INCYTE
  Company Number: CN-002147023-NVSC2025CN125712

PATIENT

DRUGS (1)
  1. RUXOLITINIB [Suspect]
     Active Substance: RUXOLITINIB
     Indication: Myelofibrosis
     Dosage: 5 MILLIGRAM, BID
     Route: 065

REACTIONS (1)
  - Upper respiratory tract infection [Recovering/Resolving]
